FAERS Safety Report 19457537 (Version 1)
Quarter: 2021Q2

REPORT INFORMATION
  Report Type: Spontaneous
  Country: US (occurrence: US)
  Receive Date: 20210624
  Receipt Date: 20210624
  Transmission Date: 20210717
  Serious: No
  Sender: FDA-Public Use
  Company Number: US-UNITED THERAPEUTICS-UNT-2021-011558

PATIENT
  Sex: Female
  Weight: 78.91 kg

DRUGS (3)
  1. REMODULIN [Suspect]
     Active Substance: TREPROSTINIL
     Indication: PULMONARY ARTERIAL HYPERTENSION
     Dosage: UNK, CONTINUING
     Route: 058
     Dates: start: 20210522
  2. REMODULIN [Suspect]
     Active Substance: TREPROSTINIL
     Dosage: 0.0221 ?G/KG, CONTINUING (0.024ML/HR PUMP RATE)
     Route: 058
     Dates: start: 20210612
  3. TORSEMIDE. [Suspect]
     Active Substance: TORSEMIDE
     Indication: FLUID RETENTION
     Dosage: UNK
     Route: 065
     Dates: start: 2021

REACTIONS (2)
  - Gout [Unknown]
  - Fluid retention [Unknown]

NARRATIVE: CASE EVENT DATE: 2021
